FAERS Safety Report 9130040 (Version 1)
Quarter: 2013Q1

REPORT INFORMATION
  Report Type: Spontaneous
  Country: US (occurrence: US)
  Receive Date: 20130228
  Receipt Date: 20130228
  Transmission Date: 20140127
  Serious: No
  Sender: FDA-Public Use
  Company Number: US-ABBOTT-13P-163-1038829-00

PATIENT
  Age: 55 Year
  Sex: Male
  Weight: 79.45 kg

DRUGS (2)
  1. ANDROGEL [Suspect]
     Indication: BLOOD TESTOSTERONE DECREASED
     Dates: start: 201212
  2. ANDROGEL [Suspect]
     Dates: start: 201204, end: 201212

REACTIONS (2)
  - Hypopnoea [Not Recovered/Not Resolved]
  - Asthenia [Not Recovered/Not Resolved]
